FAERS Safety Report 5053251-X (Version None)
Quarter: 2006Q3

REPORT INFORMATION
  Report Type: 
  Country: None (occurrence: None)
  Receive Date: 20060712
  Receipt Date: 20060622
  Transmission Date: 20061208
  Serious: No
  Sender: FDA-Public Use
  Company Number: US200603005184

PATIENT
  Age: 66 Year
  Sex: Female

DRUGS (3)
  1. HUMULIN N [Suspect]
     Indication: DIABETES MELLITUS
     Dosage: 35 U, 2/D,
     Dates: start: 20050101
  2. HUMULIN R [Suspect]
     Indication: DIABETES MELLITUS
     Dates: start: 20050101
  3. GLUCOPHAGE ^UNS^ (METFORMIN HYDROCHLORIDE) [Concomitant]

REACTIONS (4)
  - CATARACT [None]
  - DIABETIC RETINOPATHY [None]
  - OPEN ANGLE GLAUCOMA [None]
  - VISUAL ACUITY REDUCED [None]
